FAERS Safety Report 4940272-8 (Version None)
Quarter: 2006Q1

REPORT INFORMATION
  Report Type: 
  Country: None (occurrence: None)
  Receive Date: 20060310
  Receipt Date: 20051026
  Transmission Date: 20060701
  Serious: Yes (Hospitalization)
  Sender: FDA-Public Use
  Company Number: US-MERCK-0510USA09487

PATIENT
  Age: 56 Year
  Sex: Male
  Weight: 93 kg

DRUGS (8)
  1. VIOXX [Suspect]
     Indication: ARTHRITIS
     Route: 048
     Dates: start: 20030324, end: 20040927
  2. ZESTRIL [Concomitant]
     Route: 065
     Dates: start: 19990101
  3. VERAPAMIL [Concomitant]
     Route: 065
     Dates: start: 20030324, end: 20031201
  4. ATENOLOL [Concomitant]
     Route: 065
     Dates: start: 20030324
  5. FLONASE [Concomitant]
     Route: 065
  6. WARFARIN [Concomitant]
     Route: 065
     Dates: start: 20001124
  7. HYZAAR [Concomitant]
     Route: 065
  8. CENTRUM [Concomitant]
     Route: 065

REACTIONS (2)
  - BLOOD CHOLESTEROL [None]
  - PULMONARY EMBOLISM [None]
